FAERS Safety Report 12246248 (Version 2)
Quarter: 2016Q2

REPORT INFORMATION
  Report Type: Spontaneous
  Country: JP (occurrence: JP)
  Receive Date: 20160407
  Receipt Date: 20160427
  Transmission Date: 20160815
  Serious: Yes (Hospitalization, Other)
  Sender: FDA-Public Use
  Company Number: PHJP2016JP008206

PATIENT
  Age: 74 Year
  Sex: Male

DRUGS (1)
  1. EXELON PATCH [Suspect]
     Active Substance: RIVASTIGMINE
     Indication: DEMENTIA ALZHEIMER^S TYPE
     Dosage: 4.6 MG, QD (9 MG OF RIVASTIGMINE BASE, PATCH 5 CM2)
     Route: 062
     Dates: start: 20160308, end: 20160405

REACTIONS (4)
  - Somnolence [Unknown]
  - Blood cholinesterase decreased [Unknown]
  - Ammonia increased [Unknown]
  - Dementia Alzheimer^s type [Unknown]

NARRATIVE: CASE EVENT DATE: 20160326
